FAERS Safety Report 4450974-8 (Version None)
Quarter: 2004Q3

REPORT INFORMATION
  Report Type: 
  Country: None (occurrence: None)
  Receive Date: 20040916
  Receipt Date: 20040225
  Transmission Date: 20050211
  Serious: Yes (Other)
  Sender: FDA-Public Use
  Company Number: US-BRISTOL-MYERS SQUIBB COMPANY-12520250

PATIENT
  Sex: Female

DRUGS (17)
  1. STADOL [Suspect]
     Dosage: DOSING: 10MG/ML
     Route: 045
     Dates: start: 19940131
  2. STADOL [Suspect]
     Dates: start: 19940131
  3. DEMEROL [Concomitant]
  4. METHADONE HCL [Concomitant]
  5. HYDROCODONE + ACETAMINOPHEN [Concomitant]
  6. AMITRIPTYLINE HCL [Concomitant]
  7. LORTAB [Concomitant]
  8. NEXIUM [Concomitant]
  9. CYCLOBENZAPRINE HCL [Concomitant]
  10. MEPERIDINE HCL [Concomitant]
  11. ACETAMINOPHEN W/ PROPOXYPHENE HCL [Concomitant]
  12. ULTRAM [Concomitant]
  13. IBUPROFEN [Concomitant]
  14. PAXIL [Concomitant]
  15. DICYCLOMINE [Concomitant]
  16. PROMETHAZINE HCL [Concomitant]
  17. ALPRAZOLAM [Concomitant]

REACTIONS (2)
  - DEPENDENCE [None]
  - HYPERSENSITIVITY [None]
